FAERS Safety Report 6010482-X (Version None)
Quarter: 2008Q4

REPORT INFORMATION
  Report Type: 
  Country: None (occurrence: None)
  Receive Date: 20081218
  Receipt Date: 20081215
  Transmission Date: 20090506
  Serious: Yes (Death)
  Sender: FDA-Public Use
  Company Number: JP-ASTRAZENECA-2008AP09611

PATIENT
  Age: 76 Year
  Sex: Male

DRUGS (1)
  1. CRESTOR [Suspect]
     Dosage: DOSE UNKNOWN
     Route: 048
     Dates: start: 20080801

REACTIONS (1)
  - HEPATITIS FULMINANT [None]
